FAERS Safety Report 8763976 (Version 2)
Quarter: 2012Q4

REPORT INFORMATION
  Report Type: 
  Country: US (occurrence: US)
  Receive Date: 20120831
  Receipt Date: 20120907
  Transmission Date: 20130627
  Serious: Yes (Other)
  Sender: FDA-Public Use
  Company Number: US-SANOFI-AVENTIS-2012SA061396

PATIENT
  Sex: Female

DRUGS (2)
  1. PLAVIX [Suspect]
     Route: 048
     Dates: start: 2004
  2. SYNTHROID [Concomitant]

REACTIONS (2)
  - Thyroid cancer [Unknown]
  - Incorrect storage of drug [Unknown]
